FAERS Safety Report 24307733 (Version 1)
Quarter: 2024Q3

REPORT INFORMATION
  Report Type: Spontaneous
  Country: US (occurrence: US)
  Receive Date: 20240911
  Receipt Date: 20240911
  Transmission Date: 20241016
  Serious: No
  Sender: PFIZER
  Company Number: US-PFIZER INC-202400251974

PATIENT
  Age: 13 Year
  Sex: Female

DRUGS (1)
  1. GENOTROPIN [Suspect]
     Active Substance: SOMATROPIN
     Dosage: 2.4 MG, DAILY
     Dates: start: 202312

REACTIONS (4)
  - Device use issue [Unknown]
  - Device defective [Unknown]
  - Device information output issue [Unknown]
  - Drug dose omission by device [Unknown]
